FAERS Safety Report 9623776 (Version 1)
Quarter: 2013Q4

REPORT INFORMATION
  Report Type: Spontaneous
  Country: RS (occurrence: RS)
  Receive Date: 20131015
  Receipt Date: 20131015
  Transmission Date: 20140711
  Serious: Yes (Other)
  Sender: FDA-Public Use
  Company Number: RS-JNJFOC-20131006825

PATIENT
  Sex: Female

DRUGS (4)
  1. XARELTO [Suspect]
     Indication: THROMBOSIS PROPHYLAXIS
     Route: 048
  2. XARELTO [Suspect]
     Indication: THROMBOSIS PROPHYLAXIS
     Route: 048
  3. XARELTO [Suspect]
     Indication: DEEP VEIN THROMBOSIS
     Route: 048
  4. XARELTO [Suspect]
     Indication: DEEP VEIN THROMBOSIS
     Route: 048

REACTIONS (6)
  - Pulse absent [Recovered/Resolved]
  - Vertigo [Recovered/Resolved]
  - Metrorrhagia [Recovered/Resolved]
  - Feeling abnormal [Recovered/Resolved]
  - Gingival bleeding [Recovered/Resolved]
  - Tachycardia [Recovered/Resolved]
